FAERS Safety Report 4469765-7 (Version None)
Quarter: 2004Q4

REPORT INFORMATION
  Report Type: 
  Country: None (occurrence: None)
  Receive Date: 20041008
  Receipt Date: 20040726
  Transmission Date: 20050328
  Serious: Yes (Other)
  Sender: FDA-Public Use
  Company Number: DE-ROCHE-375542

PATIENT
  Age: 43 Year
  Sex: Female
  Weight: 82 kg

DRUGS (3)
  1. XENICAL [Suspect]
     Indication: OBESITY
     Route: 048
     Dates: start: 20040501, end: 20040506
  2. TEMGESIC [Suspect]
     Indication: ARTHROPATHY
     Route: 048
  3. TEMGESIC FORTE SUBLINGUAL [Suspect]
     Indication: ARTHROPATHY
     Dosage: DRUG REPORTED AS TEMGESIC FORTE ONLY
     Route: 048

REACTIONS (6)
  - ABDOMINAL DISTENSION [None]
  - GENERAL PHYSICAL HEALTH DETERIORATION [None]
  - HYPERTENSION [None]
  - ILEUS [None]
  - NAUSEA [None]
  - OBSTRUCTION [None]
